FAERS Safety Report 6495548-2 (Version None)
Quarter: 2009Q4

REPORT INFORMATION
  Report Type: 
  Country: None (occurrence: None)
  Receive Date: 20091214
  Receipt Date: 20090710
  Transmission Date: 20100525
  Serious: No
  Sender: FDA-Public Use
  Company Number: US-BRISTOL-MYERS SQUIBB COMPANY-14698211

PATIENT
  Age: 5 Decade
  Sex: Female

DRUGS (5)
  1. ABILIFY [Suspect]
     Indication: MAJOR DEPRESSION
     Dosage: STOPPED 3 MONTHS AGO
     Dates: end: 20090101
  2. ABILIFY [Suspect]
     Indication: BIPOLAR DISORDER
     Dosage: STOPPED 3 MONTHS AGO
     Dates: end: 20090101
  3. CYMBALTA [Suspect]
     Indication: MAJOR DEPRESSION
  4. CYMBALTA [Suspect]
     Indication: BIPOLAR DISORDER
  5. ATIVAN [Concomitant]

REACTIONS (2)
  - TREMOR [None]
  - WEIGHT INCREASED [None]
